FAERS Safety Report 15942933 (Version 1)
Quarter: 2019Q1

REPORT INFORMATION
  Report Type: Spontaneous
  Country: US (occurrence: US)
  Receive Date: 20190117
  Receipt Date: 20190117
  Transmission Date: 20190417
  Serious: No
  Sender: FDA-Public Use
  Company Number: None

PATIENT
  Age: 57 Year
  Sex: Female
  Weight: 137.44 kg

DRUGS (1)
  1. IMATINIB. [Suspect]
     Active Substance: IMATINIB MESYLATE
     Dosage: ?          OTHER FREQUENCY:1T QD;?
     Route: 048
     Dates: start: 20160419

REACTIONS (8)
  - Mediastinitis [None]
  - Fall [None]
  - Nausea [None]
  - Product dose omission [None]
  - Headache [None]
  - Cellulitis [None]
  - Humerus fracture [None]
  - Abdominal discomfort [None]

NARRATIVE: CASE EVENT DATE: 20190102
